FAERS Safety Report 8211781-3 (Version None)
Quarter: 2012Q1

REPORT INFORMATION
  Report Type: 
  Country: None (occurrence: None)
  Receive Date: 20120315
  Receipt Date: 20120311
  Transmission Date: 20120608
  Serious: Yes (Other)
  Sender: FDA-Public Use
  Company Number: CZ-PFIZER INC-2012064074

PATIENT
  Sex: Female

DRUGS (1)
  1. LATANOPROST [Suspect]
     Dosage: UNK
     Route: 031

REACTIONS (4)
  - VISUAL FIELD DEFECT [None]
  - NAUSEA [None]
  - HEADACHE [None]
  - EYE PAIN [None]
